FAERS Safety Report 7920509-3 (Version None)
Quarter: 2011Q4

REPORT INFORMATION
  Report Type: 
  Country: None (occurrence: None)
  Receive Date: 20111117
  Receipt Date: 20111114
  Transmission Date: 20120403
  Serious: Yes (Other)
  Sender: FDA-Public Use
  Company Number: DE-TEVA-307693GER

PATIENT
  Sex: Male
  Weight: 76 kg

DRUGS (2)
  1. L-THYROXIN 150 [Concomitant]
  2. LAMOTRIGINE [Suspect]
     Indication: EPILEPSY
     Dosage: 100 MILLIGRAM;
     Route: 048
     Dates: start: 20060101

REACTIONS (2)
  - PERIPHERAL ARTERIAL OCCLUSIVE DISEASE [None]
  - LUPUS-LIKE SYNDROME [None]
